FAERS Safety Report 7908579-X (Version None)
Quarter: 2011Q4

REPORT INFORMATION
  Report Type: 
  Country: None (occurrence: None)
  Receive Date: 20111111
  Receipt Date: 20111018
  Transmission Date: 20120403
  Serious: No
  Sender: FDA-Public Use
  Company Number: US-ROXANE LABORATORIES, INC.-2011-RO-01493RO

PATIENT
  Sex: Female

DRUGS (1)
  1. MYCOPHENOLATE MOFETIL [Suspect]
     Indication: CHORIORETINOPATHY
     Dosage: 2000 MG
     Route: 048

REACTIONS (1)
  - PRODUCT CONTAMINATION PHYSICAL [None]
